FAERS Safety Report 13274876 (Version 2)
Quarter: 2017Q2

REPORT INFORMATION
  Report Type: Spontaneous
  Country: US (occurrence: US)
  Receive Date: 20170227
  Receipt Date: 20170414
  Transmission Date: 20170830
  Serious: No
  Sender: FDA-Public Use
  Company Number: US-ACTELION-A-US2017-150222

PATIENT
  Age: 73 Year
  Sex: Female

DRUGS (2)
  1. VALCHLOR [Suspect]
     Active Substance: MECHLORETHAMINE
     Indication: MYCOSIS FUNGOIDES
     Dosage: UNK
     Route: 061
     Dates: start: 20170120
  2. CLOBETASOL PROPIONATE. [Concomitant]
     Active Substance: CLOBETASOL PROPIONATE
     Dosage: 0.05%

REACTIONS (3)
  - Erythema [Unknown]
  - Application site erythema [Unknown]
  - Application site inflammation [Unknown]
